FAERS Safety Report 20868860 (Version 1)
Quarter: 2022Q2

REPORT INFORMATION
  Report Type: Spontaneous
  Country: RU (occurrence: RU)
  Receive Date: 20220524
  Receipt Date: 20220524
  Transmission Date: 20220720
  Serious: Yes (Life-Threatening, Other)
  Sender: FDA-Public Use
  Company Number: RU-BRISTOL-MYERS SQUIBB COMPANY-2022-045970

PATIENT
  Age: 33 Year
  Sex: Female

DRUGS (2)
  1. NIVOLUMAB [Suspect]
     Active Substance: NIVOLUMAB
     Indication: Malignant melanoma
     Dosage: DOSE : NIVO 1 MG/KG
     Route: 065
     Dates: start: 20220415
  2. IPILIMUMAB [Suspect]
     Active Substance: IPILIMUMAB
     Indication: Malignant melanoma
     Dosage: IPI 3 MG/KG
     Route: 065
     Dates: start: 20220415

REACTIONS (5)
  - Paraesthesia [Unknown]
  - Ophthalmoplegia [Unknown]
  - Muscular weakness [Unknown]
  - Eyelid ptosis [Unknown]
  - Quadriparesis [Unknown]
